FAERS Safety Report 17730239 (Version 1)
Quarter: 2020Q2

REPORT INFORMATION
  Report Type: Spontaneous
  Country: US (occurrence: US)
  Receive Date: 20200430
  Receipt Date: 20200430
  Transmission Date: 20200714
  Serious: No
  Sender: FDA-Public Use
  Company Number: US-BLUEPRINT MEDICINES CORPORATION-SP-US-2020-000292

PATIENT
  Sex: Female

DRUGS (3)
  1. IMODIUM [Concomitant]
     Active Substance: LOPERAMIDE HYDROCHLORIDE
     Indication: DIARRHOEA
     Route: 065
  2. AYVAKIT [Suspect]
     Active Substance: AVAPRITINIB
     Indication: GASTROINTESTINAL STROMAL TUMOUR
     Route: 048
     Dates: start: 20200213
  3. AYVAKIT [Suspect]
     Active Substance: AVAPRITINIB
     Route: 048
     Dates: start: 20200213

REACTIONS (8)
  - Product dose omission [Unknown]
  - Fatigue [Unknown]
  - Loss of control of legs [Unknown]
  - Muscular weakness [Unknown]
  - Gait disturbance [Unknown]
  - Vomiting [Unknown]
  - Nausea [Unknown]
  - Dizziness [Unknown]
